FAERS Safety Report 20531177 (Version 1)
Quarter: 2022Q1

REPORT INFORMATION
  Report Type: Spontaneous
  Country: US (occurrence: US)
  Receive Date: 20220301
  Receipt Date: 20220301
  Transmission Date: 20220424
  Serious: No
  Sender: FDA-Public Use
  Company Number: US-GW PHARMA-202202USGW00868

PATIENT
  Sex: Female

DRUGS (1)
  1. EPIDIOLEX [Suspect]
     Active Substance: CANNABIDIOL
     Indication: Lennox-Gastaut syndrome
     Dosage: 600 MILLIGRAM, FREQUENCY NOT REPORTED, DOSE REDUCED
     Route: 048
     Dates: start: 202002

REACTIONS (2)
  - Petit mal epilepsy [Unknown]
  - Diarrhoea [Unknown]
